FAERS Safety Report 4285552-7 (Version None)
Quarter: 2004Q1

REPORT INFORMATION
  Report Type: 
  Country: None (occurrence: None)
  Receive Date: 20040204
  Receipt Date: 20040127
  Transmission Date: 20041129
  Serious: Yes (Other)
  Sender: FDA-Public Use
  Company Number: 04-00034

PATIENT
  Sex: Male

DRUGS (1)
  1. ALPRAZOLAM [Suspect]
     Indication: PAIN
     Dosage: 1 MG 1 THREE TIMES A DAY, ORAL
     Route: 048
     Dates: start: 20030812, end: 20030815

REACTIONS (15)
  - CONVULSION [None]
  - FEELING ABNORMAL [None]
  - HAEMORRHAGE [None]
  - INJURY [None]
  - JOINT DISLOCATION [None]
  - JOINT SPRAIN [None]
  - LIGAMENT INJURY [None]
  - LUMBAR VERTEBRAL FRACTURE [None]
  - MUSCLE DISORDER [None]
  - MUSCLE STRAIN [None]
  - MUSCULOSKELETAL DISORDER [None]
  - NERVE INJURY [None]
  - PAIN [None]
  - ROAD TRAFFIC ACCIDENT [None]
  - TREATMENT NONCOMPLIANCE [None]
